FAERS Safety Report 7938297-3 (Version None)
Quarter: 2011Q4

REPORT INFORMATION
  Report Type: 
  Country: None (occurrence: None)
  Receive Date: 20111123
  Receipt Date: 20111115
  Transmission Date: 20120403
  Serious: Yes (Other)
  Sender: FDA-Public Use
  Company Number: IT-ELI_LILLY_AND_COMPANY-IT201111004839

PATIENT
  Sex: Male

DRUGS (4)
  1. BYETTA [Suspect]
     Indication: TYPE 2 DIABETES MELLITUS
     Dosage: 10 UG, QD
     Route: 058
     Dates: start: 20090623, end: 20100302
  2. METFORAL [Concomitant]
     Indication: TYPE 2 DIABETES MELLITUS
     Dosage: 1700 MG, UNK
     Route: 048
     Dates: start: 20011215, end: 20100203
  3. NORVASC [Concomitant]
     Dosage: 10 MG, UNK
     Route: 048
     Dates: start: 20081023, end: 20100302
  4. NEBIVOLOL HCL [Concomitant]
     Dosage: 5 MG, UNK
     Route: 048
     Dates: start: 20081023, end: 20100302

REACTIONS (1)
  - RECTAL CANCER [None]
